FAERS Safety Report 6202389-X (Version None)
Quarter: 2009Q2

REPORT INFORMATION
  Report Type: 
  Country: None (occurrence: None)
  Receive Date: 20090521
  Receipt Date: 20090521
  Transmission Date: 20091009
  Serious: No
  Sender: FDA-Public Use
  Company Number: None

PATIENT
  Age: 74 Year
  Sex: Female
  Weight: 46.2669 kg

DRUGS (2)
  1. LEVAQUIN [Suspect]
     Indication: COUGH
     Dosage: 4 TSP. 1 X DAY
     Dates: start: 20090504, end: 20090508
  2. LEVAQUIN [Suspect]
     Indication: SINUSITIS
     Dosage: 4 TSP. 1 X DAY
     Dates: start: 20090504, end: 20090508

REACTIONS (5)
  - ARTHRALGIA [None]
  - FATIGUE [None]
  - MYALGIA [None]
  - OROPHARYNGEAL PAIN [None]
  - TENDON PAIN [None]
